FAERS Safety Report 23342520 (Version 2)
Quarter: 2024Q1

REPORT INFORMATION
  Report Type: Spontaneous
  Country: FR (occurrence: FR)
  Receive Date: 20231227
  Receipt Date: 20240109
  Transmission Date: 20240410
  Serious: Yes (Hospitalization)
  Sender: FDA-Public Use
  Company Number: None

PATIENT
  Age: 60 Year
  Sex: Male

DRUGS (8)
  1. LEVOFLOXACIN [Suspect]
     Active Substance: LEVOFLOXACIN
     Indication: Stenotrophomonas infection
     Dosage: 1 GRAM?INTRAVENOUS?ROA-20045000
     Route: 042
     Dates: start: 20231126, end: 20231211
  2. IOBITRIDOL [Suspect]
     Active Substance: IOBITRIDOL
     Indication: Computerised tomogram
     Dosage: 90 MG?INTRAVENOUS?ROA-20045000
     Dates: start: 20231116, end: 20231116
  3. IOBITRIDOL [Suspect]
     Active Substance: IOBITRIDOL
     Dosage: 90 MG?INTRAVENOUS?ROA-20045000
     Dates: start: 20231112, end: 20231112
  4. IOBITRIDOL [Suspect]
     Active Substance: IOBITRIDOL
     Dosage: 90 MG?INTRAVENOUS?ROA-20045000
     Dates: start: 20231123, end: 20231123
  5. PANTOPRAZOLE [Suspect]
     Active Substance: PANTOPRAZOLE
     Indication: Infection
     Dosage: 40 MG?INTRAVENOUS?ROA-20045000
     Dates: start: 20231112, end: 20231206
  6. BACTRIM [Suspect]
     Active Substance: SULFAMETHOXAZOLE\TRIMETHOPRIM
     Indication: Stenotrophomonas infection
     Dosage: 3 DOSAGE FORM?INTRAVENOUS?ROA-20045000
     Dates: start: 20231126, end: 20231127
  7. IOMERON [Suspect]
     Active Substance: IOMEPROL
     Indication: Urogram
     Dosage: 1 ML?INTRAVENOUS?ROA-20045000
     Dates: start: 20231124, end: 20231124
  8. MEROPENEM [Concomitant]
     Active Substance: MEROPENEM
     Indication: Infection
     Dosage: INTRAVENOUS?ROA-20045000
     Dates: start: 20231114, end: 20231128

REACTIONS (1)
  - Toxic skin eruption [Recovered/Resolved]

NARRATIVE: CASE EVENT DATE: 20231127
